FAERS Safety Report 12072573 (Version 2)
Quarter: 2016Q1

REPORT INFORMATION
  Report Type: Spontaneous
  Country: US (occurrence: US)
  Receive Date: 20160212
  Receipt Date: 20160309
  Transmission Date: 20160526
  Serious: Yes (Other)
  Sender: FDA-Public Use
  Company Number: US-009507513-1602USA005123

PATIENT
  Age: 83 Year
  Sex: Female

DRUGS (7)
  1. LEVAQUIN [Concomitant]
     Active Substance: LEVOFLOXACIN
     Dosage: UNK
  2. ONDANSETRON [Concomitant]
     Active Substance: ONDANSETRON
     Dosage: UNK
  3. XELODA [Concomitant]
     Active Substance: CAPECITABINE
     Dosage: UNK
  4. LORAZEPAM. [Concomitant]
     Active Substance: LORAZEPAM
     Dosage: UNK
  5. KEYTRUDA [Suspect]
     Active Substance: PEMBROLIZUMAB
     Indication: TRIPLE NEGATIVE BREAST CANCER
     Dosage: 173 MG, EVERY 21 DAYS
     Route: 042
     Dates: start: 20150902, end: 20151125
  6. COMPAZINE (PROCHLORPERAZINE MALEATE) [Concomitant]
     Dosage: UNK
  7. DEXAMETHASONE. [Concomitant]
     Active Substance: DEXAMETHASONE
     Dosage: UNK

REACTIONS (7)
  - Metastases to central nervous system [Not Recovered/Not Resolved]
  - Seizure [Not Recovered/Not Resolved]
  - Product use issue [Unknown]
  - Nausea [Unknown]
  - Dysarthria [Unknown]
  - Vomiting [Unknown]
  - Breast cancer [Not Recovered/Not Resolved]

NARRATIVE: CASE EVENT DATE: 20151217
